FAERS Safety Report 16960500 (Version 1)
Quarter: 2019Q4

REPORT INFORMATION
  Report Type: Spontaneous
  Country: US (occurrence: US)
  Receive Date: 20190906
  Receipt Date: 20190906
  Transmission Date: 20200122
  Serious: No
  Sender: FDA-Public Use
  Company Number: None

PATIENT
  Age: 23 Year
  Sex: Female

DRUGS (1)
  1. COPAXONE [Suspect]
     Active Substance: GLATIRAMER ACETATE
     Route: 058
     Dates: start: 201908

REACTIONS (5)
  - Lip dry [None]
  - Eye pruritus [None]
  - Rash erythematous [None]
  - Alcohol use [None]
  - Middle insomnia [None]

NARRATIVE: CASE EVENT DATE: 20190905
